FAERS Safety Report 9103196 (Version 1)
Quarter: 2013Q1

REPORT INFORMATION
  Report Type: Spontaneous
  Country: GB (occurrence: None)
  Receive Date: 20130125
  Receipt Date: 20130125
  Transmission Date: 20140127
  Serious: Yes (Hospitalization)
  Sender: FDA-Public Use
  Company Number: 02013-01020

PATIENT
  Age: 1 Year
  Sex: Female

DRUGS (2)
  1. ACETAMINOPHEN (ACETAMINOPHEN) [Suspect]
     Indication: PRODUCT USED FOR UNKNOWN INDICATION
  2. EFFERALGAN (00020001) (PARACETAMOL) [Suspect]
     Indication: PYREXIA

REACTIONS (1)
  - Convulsion [None]
